FAERS Safety Report 5039438-0 (Version None)
Quarter: 2006Q2

REPORT INFORMATION
  Report Type: 
  Country: None (occurrence: None)
  Receive Date: 20060623
  Receipt Date: 20060612
  Transmission Date: 20061013
  Serious: Yes (Hospitalization, Other)
  Sender: FDA-Public Use
  Company Number: HQWYE784403AUG04

PATIENT
  Age: 59 Year
  Sex: Female
  Weight: 108.96 kg

DRUGS (4)
  1. PREMPRO [Suspect]
  2. CYCRIN [Suspect]
  3. PREMARIN [Suspect]
  4. PROVERA [Suspect]

REACTIONS (6)
  - BREAST CANCER METASTATIC [None]
  - FIBROCYSTIC BREAST DISEASE [None]
  - METASTASES TO LYMPH NODES [None]
  - MUSCULOSKELETAL CHEST PAIN [None]
  - OESTROGEN RECEPTOR ASSAY POSITIVE [None]
  - PROGESTERONE RECEPTOR ASSAY POSITIVE [None]
